FAERS Safety Report 7001204-4 (Version None)
Quarter: 2010Q3

REPORT INFORMATION
  Report Type: 
  Country: None (occurrence: None)
  Receive Date: 20100920
  Receipt Date: 20100302
  Transmission Date: 20110219
  Serious: Yes (Other)
  Sender: FDA-Public Use
  Company Number: US-ASTRAZENECA-2009UW20956

PATIENT
  Age: 12380 Day
  Sex: Female

DRUGS (4)
  1. SEROQUEL [Suspect]
     Route: 048
     Dates: start: 20060508
  2. MONOPRIL [Concomitant]
     Dates: start: 20061026
  3. ZYPREXA [Concomitant]
     Dosage: 5 MG TO 10 MG
     Dates: start: 20060508
  4. EFFEXOR XR [Concomitant]
     Dosage: 150MG TO 75MG
     Dates: start: 20060508

REACTIONS (4)
  - DIABETES MELLITUS [None]
  - DIABETES MELLITUS INADEQUATE CONTROL [None]
  - KETOACIDOSIS [None]
  - PANCREATITIS [None]
